FAERS Safety Report 8410193-7 (Version None)
Quarter: 2012Q2

REPORT INFORMATION
  Report Type: 
  Country: None (occurrence: None)
  Receive Date: 20120605
  Receipt Date: 20120530
  Transmission Date: 20120825
  Serious: Yes (Hospitalization, Other)
  Sender: FDA-Public Use
  Company Number: PHHY2012CA047340

PATIENT
  Sex: Male

DRUGS (1)
  1. ZOMETA [Suspect]
     Indication: PROSTATE CANCER
     Dosage: 4 MG, EVERY 12 WEEKS
     Route: 042
     Dates: start: 20110613

REACTIONS (5)
  - SKIN INFECTION [None]
  - OEDEMA PERIPHERAL [None]
  - GAIT DISTURBANCE [None]
  - MOVEMENT DISORDER [None]
  - TREMOR [None]
